FAERS Safety Report 4984486-X (Version None)
Quarter: 2006Q2

REPORT INFORMATION
  Report Type: 
  Country: None (occurrence: None)
  Receive Date: 20060427
  Receipt Date: 20060418
  Transmission Date: 20061013
  Serious: Yes (Other)
  Sender: FDA-Public Use
  Company Number: SE-GLAXOSMITHKLINE-B0421492A

PATIENT
  Age: 74 Year
  Sex: Female

DRUGS (2)
  1. SEROXAT [Suspect]
     Dosage: 10MG PER DAY
     Route: 048
     Dates: start: 20060129, end: 20060204
  2. SALURES [Suspect]
     Dosage: 2.5MG PER DAY
     Route: 048
     Dates: end: 20060204

REACTIONS (6)
  - ASTHENIA [None]
  - DIARRHOEA [None]
  - ELECTROCARDIOGRAM QT PROLONGED [None]
  - FALL [None]
  - HYPOKALAEMIA [None]
  - HYPONATRAEMIA [None]
